FAERS Safety Report 7548980-X (Version None)
Quarter: 2011Q2

REPORT INFORMATION
  Report Type: 
  Country: None (occurrence: None)
  Receive Date: 20110615
  Receipt Date: 20110608
  Transmission Date: 20111010
  Serious: Yes (Other)
  Sender: FDA-Public Use
  Company Number: JP-ROCHE-756175

PATIENT
  Sex: Female
  Weight: 2.8 kg

DRUGS (1)
  1. TAMIFLU [Suspect]
     Indication: STREPTOCOCCAL INFECTION
     Dosage: DOSE FORM: UNCERTAINTY, NOTE: DOSAGE IS UNCERTAIN

REACTIONS (2)
  - DEATH [None]
  - DRUG EXPOSURE DURING PREGNANCY [None]
